FAERS Safety Report 17767494 (Version 2)
Quarter: 2020Q2

REPORT INFORMATION
  Report Type: Spontaneous
  Country: CR (occurrence: CR)
  Receive Date: 20200511
  Receipt Date: 20200616
  Transmission Date: 20200714
  Serious: Yes (Death, Life-Threatening)
  Sender: FDA-Public Use
  Company Number: NVSC2020CR126473

PATIENT
  Sex: Female
  Weight: 77.5 kg

DRUGS (3)
  1. GEMCITABINE. [Concomitant]
     Active Substance: GEMCITABINE
     Indication: DISEASE PROGRESSION
     Dosage: 1800 MG
     Route: 065
     Dates: start: 20200420
  2. FULVESTRANT. [Suspect]
     Active Substance: FULVESTRANT
     Indication: PRODUCT USED FOR UNKNOWN INDICATION
     Dosage: 500 MG
     Route: 030
     Dates: start: 20200212
  3. KISQALI [Suspect]
     Active Substance: RIBOCICLIB
     Indication: BREAST CANCER METASTATIC
     Dosage: 600 MG
     Route: 065
     Dates: start: 20200212, end: 20200406

REACTIONS (4)
  - Organ failure [Unknown]
  - Breast cancer metastatic [Fatal]
  - Disease progression [Fatal]
  - Jaundice [Unknown]
